FAERS Safety Report 7237706-5 (Version None)
Quarter: 2011Q1

REPORT INFORMATION
  Report Type: 
  Country: None (occurrence: None)
  Receive Date: 20110121
  Receipt Date: 20101213
  Transmission Date: 20110831
  Serious: Yes (Other)
  Sender: FDA-Public Use
  Company Number: AU-ROCHE-742152

PATIENT
  Sex: Female

DRUGS (1)
  1. XELODA [Suspect]
     Route: 065

REACTIONS (3)
  - METASTASES TO CENTRAL NERVOUS SYSTEM [None]
  - CARDIAC DISORDER [None]
  - INFLAMMATION [None]
